FAERS Safety Report 19094516 (Version 1)
Quarter: 2021Q2

REPORT INFORMATION
  Report Type: Spontaneous
  Country: US (occurrence: US)
  Receive Date: 20210405
  Receipt Date: 20210405
  Transmission Date: 20210717
  Serious: No
  Sender: FDA-Public Use
  Company Number: US-JAZZ-2021-US-004726

PATIENT
  Age: 41 Year
  Sex: Female

DRUGS (2)
  1. SUNOSI [Suspect]
     Active Substance: SOLRIAMFETOL
     Dosage: 75 MILLIGRAM
     Route: 048
  2. SUNOSI [Suspect]
     Active Substance: SOLRIAMFETOL
     Indication: PRODUCT USED FOR UNKNOWN INDICATION
     Dosage: 150 MILLIGRAM
     Route: 048

REACTIONS (1)
  - Palpitations [Recovered/Resolved]
